FAERS Safety Report 5727139-2 (Version None)
Quarter: 2008Q2

REPORT INFORMATION
  Report Type: 
  Country: None (occurrence: None)
  Receive Date: 20080505
  Receipt Date: 20080430
  Transmission Date: 20081010
  Serious: Yes (Life-Threatening)
  Sender: FDA-Public Use
  Company Number: CN-BAYER-200817594GPV

PATIENT
  Age: 52 Year
  Sex: Male
  Weight: 75 kg

DRUGS (3)
  1. ULTRAVIST (PHARMACY BULK) [Suspect]
     Indication: LYMPHOMA
     Dosage: TOTAL DAILY DOSE: 130 ML
     Route: 040
     Dates: start: 20080430, end: 20080430
  2. NIKETHAMIDE [Concomitant]
     Route: 042
     Dates: start: 20080430
  3. SODIUM BICARBONATE [Concomitant]
     Route: 042
     Dates: start: 20080430

REACTIONS (8)
  - BLOOD PRESSURE DECREASED [None]
  - CARDIAC ARREST [None]
  - CYANOSIS [None]
  - DYSPNOEA [None]
  - HYPERHIDROSIS [None]
  - LOSS OF CONSCIOUSNESS [None]
  - PULSE PRESSURE DECREASED [None]
  - URINARY INCONTINENCE [None]
